FAERS Safety Report 6800890-9 (Version None)
Quarter: 2010Q2

REPORT INFORMATION
  Report Type: 
  Country: None (occurrence: None)
  Receive Date: 20100629
  Receipt Date: 20100614
  Transmission Date: 20101027
  Serious: Yes (Other)
  Sender: FDA-Public Use
  Company Number: PHHY2010AR39330

PATIENT

DRUGS (2)
  1. CLOZAPINE [Suspect]
     Dosage: 500 MG DAILY
  2. CLONAZEPAM [Concomitant]

REACTIONS (1)
  - PANIC DISORDER [None]
